FAERS Safety Report 10147701 (Version 2)
Quarter: 2014Q3

REPORT INFORMATION
  Report Type: Spontaneous
  Country: US (occurrence: US)
  Receive Date: 20140501
  Receipt Date: 20140820
  Transmission Date: 20150326
  Serious: Yes (Other)
  Sender: FDA-Public Use
  Company Number: US-AMGEN-USASP2014024780

PATIENT
  Age: 61 Year
  Sex: Female

DRUGS (2)
  1. ENBREL [Suspect]
     Active Substance: ETANERCEPT
     Route: 065
  2. ENBREL [Suspect]
     Active Substance: ETANERCEPT
     Indication: RHEUMATOID ARTHRITIS
     Dosage: 50 MG, QWK
     Route: 065
     Dates: start: 20131209, end: 201407

REACTIONS (12)
  - Cardiomyopathy [Not Recovered/Not Resolved]
  - Feeling hot [Recovered/Resolved]
  - Stress [Not Recovered/Not Resolved]
  - Erythema [Recovered/Resolved]
  - Heart rate increased [Not Recovered/Not Resolved]
  - Rash erythematous [Recovered/Resolved]
  - Pain [Recovered/Resolved]
  - Rash [Recovered/Resolved]
  - Cardiac valve disease [Not Recovered/Not Resolved]
  - Hypertension [Unknown]
  - Ear infection [Recovered/Resolved]
  - Rash papular [Recovered/Resolved]

NARRATIVE: CASE EVENT DATE: 20131219
